FAERS Safety Report 7275441-8 (Version None)
Quarter: 2011Q1

REPORT INFORMATION
  Report Type: 
  Country: None (occurrence: None)
  Receive Date: 20110202
  Receipt Date: 20110202
  Transmission Date: 20110831
  Serious: No
  Sender: FDA-Public Use
  Company Number: None

PATIENT
  Age: 29 Year
  Sex: Female
  Weight: 57.1532 kg

DRUGS (1)
  1. CELEXA [Suspect]
     Indication: ANXIETY
     Dosage: 10 MG DAILY PO
     Route: 048
     Dates: start: 20110111, end: 20110111

REACTIONS (6)
  - FORMICATION [None]
  - SUICIDAL IDEATION [None]
  - ANXIETY [None]
  - MUSCLE TWITCHING [None]
  - EMOTIONAL DISORDER [None]
  - TARDIVE DYSKINESIA [None]
